FAERS Safety Report 10606645 (Version 1)
Quarter: 2014Q4

REPORT INFORMATION
  Report Type: Spontaneous
  Country: CA (occurrence: None)
  Receive Date: 20141124
  Receipt Date: 20141124
  Transmission Date: 20150529
  Serious: No
  Sender: FDA-Public Use
  Company Number: None

PATIENT
  Age: 29 Year
  Sex: Male
  Weight: 84.82 kg

DRUGS (1)
  1. PROPECIA [Suspect]
     Active Substance: FINASTERIDE
     Indication: ALOPECIA
     Dosage: QUARTER OF A PILL EVERY DAY ONCE DAILY TAKEN BY MOUTH
     Route: 048
     Dates: start: 20141117

REACTIONS (5)
  - Testicular pain [None]
  - Spermatozoa progressive motility abnormal [None]
  - Sperm concentration decreased [None]
  - Sperm analysis abnormal [None]
  - Sperm concentration abnormal [None]

NARRATIVE: CASE EVENT DATE: 20141117
